FAERS Safety Report 8300537-9 (Version None)
Quarter: 2012Q2

REPORT INFORMATION
  Report Type: 
  Country: None (occurrence: None)
  Receive Date: 20120420
  Receipt Date: 20120410
  Transmission Date: 20120825
  Serious: Yes (Other)
  Sender: FDA-Public Use
  Company Number: JP-VERTEX PHARMACEUTICALS INC.-AE-2012-003525

PATIENT
  Age: 53 Year
  Sex: Male

DRUGS (7)
  1. AMOBAN [Concomitant]
     Route: 048
     Dates: start: 20120113, end: 20120330
  2. EPADEL S [Concomitant]
     Route: 048
     Dates: start: 20120106
  3. TELAVIC (TELAPREVIR) [Suspect]
     Indication: HEPATITIS C
     Route: 048
     Dates: start: 20120106
  4. REBETOL [Concomitant]
     Indication: HEPATITIS C
     Route: 048
     Dates: start: 20120106, end: 20120120
  5. PEGINTERFERON ALFA-2B [Concomitant]
     Indication: HEPATITIS C
     Route: 051
     Dates: start: 20120106
  6. LOXONIN [Concomitant]
     Route: 048
     Dates: start: 20120109
  7. REBETOL [Concomitant]
     Route: 048
     Dates: start: 20120121

REACTIONS (1)
  - WHITE BLOOD CELL COUNT DECREASED [None]
